FAERS Safety Report 8001450-7 (Version None)
Quarter: 2011Q4

REPORT INFORMATION
  Report Type: 
  Country: None (occurrence: None)
  Receive Date: 20111219
  Receipt Date: 20111203
  Transmission Date: 20120403
  Serious: Yes (Other)
  Sender: FDA-Public Use
  Company Number: 2011AP002954

PATIENT
  Age: 68 Year
  Sex: Male

DRUGS (7)
  1. METOPROLOL [Concomitant]
  2. ATORVASTATIN [Concomitant]
  3. LISINOPRIL [Concomitant]
  4. SITAGLIPTIN [Concomitant]
  5. METFORMIN HCL [Suspect]
     Indication: TYPE 2 DIABETES MELLITUS
  6. WARFARIN SODIUM [Concomitant]
  7. GLIMEPIRIDE [Concomitant]

REACTIONS (5)
  - LACTIC ACIDOSIS [None]
  - HEART RATE IRREGULAR [None]
  - ATRIAL FIBRILLATION [None]
  - BLOOD LACTATE DEHYDROGENASE INCREASED [None]
  - BLOOD GLUCOSE INCREASED [None]
